FAERS Safety Report 10074967 (Version 1)
Quarter: 2014Q2

REPORT INFORMATION
  Report Type: Spontaneous
  Country: US (occurrence: US)
  Receive Date: 20140414
  Receipt Date: 20140414
  Transmission Date: 20141212
  Serious: No
  Sender: FDA-Public Use
  Company Number: US-BIOGENIDEC-2014BI028036

PATIENT
  Age: 43 Year
  Sex: Female
  Weight: 69 kg

DRUGS (2)
  1. TECFIDERA [Suspect]
     Indication: PRODUCT USED FOR UNKNOWN INDICATION
  2. TECFIDERA [Suspect]
     Indication: PRODUCT USED FOR UNKNOWN INDICATION
     Route: 048
     Dates: start: 20131212, end: 20131219

REACTIONS (3)
  - Tooth disorder [Not Recovered/Not Resolved]
  - Prescribed underdose [Recovered/Resolved]
  - Gastrointestinal disorder [Unknown]
